FAERS Safety Report 6490069-5 (Version None)
Quarter: 2009Q4

REPORT INFORMATION
  Report Type: 
  Country: None (occurrence: None)
  Receive Date: 20091211
  Receipt Date: 20081203
  Transmission Date: 20100525
  Serious: No
  Sender: FDA-Public Use
  Company Number: A0759330A

PATIENT
  Sex: Male

DRUGS (4)
  1. FLONASE [Suspect]
     Indication: TRIGEMINAL NEURALGIA
     Route: 065
  2. CLARITIN [Suspect]
  3. ZYRTEC [Suspect]
  4. ASTELIN [Suspect]

REACTIONS (3)
  - CONDITION AGGRAVATED [None]
  - RHINALGIA [None]
  - TRIGEMINAL NEURALGIA [None]
